FAERS Safety Report 9768682 (Version 3)
Quarter: 2015Q3

REPORT INFORMATION
  Report Type: Report from Study
  Country: US (occurrence: US)
  Receive Date: 20131218
  Receipt Date: 20150721
  Transmission Date: 20151125
  Serious: Yes (Death)
  Sender: FDA-Public Use
  Company Number: US-BIOGENIDEC-2013BI120122

PATIENT
  Age: 67 Year
  Sex: Male

DRUGS (12)
  1. LOVASTATIN. [Concomitant]
     Active Substance: LOVASTATIN
  2. RELPAX [Concomitant]
     Active Substance: ELETRIPTAN HYDROBROMIDE
  3. ACTONEL [Concomitant]
     Active Substance: RISEDRONATE SODIUM
  4. PREDNISONE. [Concomitant]
     Active Substance: PREDNISONE
  5. CELEBREX [Concomitant]
     Active Substance: CELECOXIB
  6. HYDROCODONE/ACETAMINOPHEN [Concomitant]
     Active Substance: ACETAMINOPHEN\HYDROCODONE
  7. METOPROLOL TARTRATE. [Concomitant]
     Active Substance: METOPROLOL TARTRATE
  8. AVONEX [Suspect]
     Active Substance: INTERFERON BETA-1A
     Indication: MULTIPLE SCLEROSIS
     Route: 030
     Dates: start: 20000105
  9. TESTIM [Concomitant]
     Active Substance: TESTOSTERONE
  10. AMBIEN [Concomitant]
     Active Substance: ZOLPIDEM TARTRATE
  11. CLONAZEPAM. [Concomitant]
     Active Substance: CLONAZEPAM
  12. PLAVIX [Concomitant]
     Active Substance: CLOPIDOGREL BISULFATE

REACTIONS (1)
  - Death [Fatal]

NARRATIVE: CASE EVENT DATE: 201312
